FAERS Safety Report 22084722 (Version 1)
Quarter: 2023Q1

REPORT INFORMATION
  Report Type: Spontaneous
  Country: US (occurrence: US)
  Receive Date: 20230310
  Receipt Date: 20230310
  Transmission Date: 20230417
  Serious: No
  Sender: FDA-Public Use
  Company Number: US-ELI_LILLY_AND_COMPANY-US202303004774

PATIENT
  Sex: Female

DRUGS (1)
  1. TALTZ [Suspect]
     Active Substance: IXEKIZUMAB
     Indication: Psoriasis
     Dosage: 160 MG, OTHER(LOADING DOSE)
     Route: 065
     Dates: start: 202302

REACTIONS (5)
  - Psoriasis [Unknown]
  - Abdominal pain [Not Recovered/Not Resolved]
  - Gingival recession [Recovered/Resolved]
  - Gingival discolouration [Recovered/Resolved]
  - Weight decreased [Not Recovered/Not Resolved]
